FAERS Safety Report 21985898 (Version 1)
Quarter: 2023Q1

REPORT INFORMATION
  Report Type: Spontaneous
  Country: US (occurrence: None)
  Receive Date: 20230211
  Receipt Date: 20230211
  Transmission Date: 20230417
  Serious: No
  Sender: FDA-Public Use
  Company Number: None

PATIENT
  Age: 31 Year
  Sex: Female
  Weight: 73.8 kg

DRUGS (5)
  1. DEXTROAMPHETAMINE [Suspect]
     Active Substance: DEXTROAMPHETAMINE
     Indication: Attention deficit hyperactivity disorder
     Dosage: OTHER QUANTITY : 1 TABLET(S);?FREQUENCY : TWICE A DAY;?
     Route: 048
     Dates: start: 20230209, end: 20230211
  2. ALPRAZOLAM [Concomitant]
     Active Substance: ALPRAZOLAM
  3. VYVANSE [Concomitant]
     Active Substance: LISDEXAMFETAMINE DIMESYLATE
  4. PAXIL [Concomitant]
     Active Substance: PAROXETINE HYDROCHLORIDE
  5. Daily probiotic [Concomitant]

REACTIONS (11)
  - Product substitution issue [None]
  - Heart rate increased [None]
  - Dizziness [None]
  - Dizziness [None]
  - Palpitations [None]
  - Anxiety [None]
  - Chills [None]
  - Confusional state [None]
  - Nausea [None]
  - Headache [None]
  - Feeling abnormal [None]

NARRATIVE: CASE EVENT DATE: 20230209
